FAERS Safety Report 6570595-0 (Version None)
Quarter: 2010Q1

REPORT INFORMATION
  Report Type: 
  Country: None (occurrence: None)
  Receive Date: 20100204
  Receipt Date: 20100129
  Transmission Date: 20100710
  Serious: Yes (Other)
  Sender: FDA-Public Use
  Company Number: B0631042A

PATIENT
  Sex: Male

DRUGS (1)
  1. ALLI [Suspect]
     Dosage: 60MG UNKNOWN
     Route: 065

REACTIONS (3)
  - CARDIOVASCULAR DISORDER [None]
  - DEAFNESS UNILATERAL [None]
  - SYNCOPE [None]
